FAERS Safety Report 25073208 (Version 2)
Quarter: 2025Q1

REPORT INFORMATION
  Report Type: Spontaneous
  Country: GB (occurrence: GB)
  Receive Date: 20250313
  Receipt Date: 20250331
  Transmission Date: 20250409
  Serious: Yes (Other)
  Sender: SANOFI AVENTIS
  Company Number: GB-SA-2025SA074422

PATIENT
  Age: 65 Year
  Sex: Male

DRUGS (1)
  1. DUPIXENT [Suspect]
     Active Substance: DUPILUMAB
     Indication: Asthma
     Dosage: 200 MG, QOW
     Route: 058
     Dates: start: 2024, end: 2024

REACTIONS (2)
  - Eosinophilic granulomatosis with polyangiitis [Unknown]
  - Antineutrophil cytoplasmic antibody positive [Unknown]

NARRATIVE: CASE EVENT DATE: 20240101
